FAERS Safety Report 19418901 (Version 1)
Quarter: 2021Q2

REPORT INFORMATION
  Report Type: Spontaneous
  Country: US (occurrence: US)
  Receive Date: 20210615
  Receipt Date: 20210615
  Transmission Date: 20210717
  Serious: No
  Sender: FDA-Public Use
  Company Number: US-NEPHRON STERILE COMPOUNDING CENTER-2112739

PATIENT
  Age: 26 Year
  Sex: Female
  Weight: 88.9 kg

DRUGS (6)
  1. FENTANYL 200MCG/ROPIVACAINE 0.2% EPIDURAL [Concomitant]
     Route: 008
     Dates: start: 20210603, end: 20210603
  2. PHENYLEPHRINE HCL [Suspect]
     Active Substance: PHENYLEPHRINE HYDROCHLORIDE
     Indication: HYPOTENSION
     Route: 040
     Dates: start: 20210603, end: 20210603
  3. OXYTOCIN. [Concomitant]
     Active Substance: OXYTOCIN
     Route: 042
     Dates: start: 20210603, end: 20210603
  4. MISOPROSTOL. [Concomitant]
     Active Substance: MISOPROSTOL
     Route: 067
     Dates: start: 20210603, end: 20210603
  5. MAGNESIUM SULFATE IN DEXTROSE [Concomitant]
     Active Substance: MAGNESIUM SULFATE
     Route: 042
     Dates: start: 20210603, end: 20210603
  6. PENICILLIN G SODIUM. [Concomitant]
     Active Substance: PENICILLIN G SODIUM
     Route: 042
     Dates: start: 20210603, end: 20210603

REACTIONS (1)
  - Drug ineffective [Recovered/Resolved]

NARRATIVE: CASE EVENT DATE: 20210603
